FAERS Safety Report 5152740-7 (Version None)
Quarter: 2006Q4

REPORT INFORMATION
  Report Type: 
  Country: None (occurrence: None)
  Receive Date: 20061109
  Receipt Date: 20061031
  Transmission Date: 20070319
  Serious: Yes (Death)
  Sender: FDA-Public Use
  Company Number: 163-C5013-06110063

PATIENT
  Age: 59 Year
  Sex: Female
  Weight: 70.3 kg

DRUGS (21)
  1. REVLIMID [Suspect]
     Indication: MULTIPLE MYELOMA
     Dosage: 10 MG, DAILY FOR 21 DAYS, ORAL
     Route: 048
     Dates: start: 20051209
  2. NEURONTIN (GABAPENTIN) (OINTMENT) [Concomitant]
  3. COMPAZINE (PROCHLORPERAZINE EDISYLATE) (TABLET) [Concomitant]
  4. DOXYCYCLINE (DOXYCYCLINE) (CAPSULES) [Concomitant]
  5. CHLORHEXIDINE GLUCONATE (CHLORHEXIDINE GLUCONATE) (LIQUID) [Concomitant]
  6. DEXAMETHASONE (DEXAMETHASONE) (LIQUID) [Concomitant]
  7. ALDACTONE [Concomitant]
  8. ACIPHEX [Concomitant]
  9. PREDNISONE TAB [Concomitant]
  10. VYTORIN (INEGY) (TABLETS) [Concomitant]
  11. DYAZIDE (DYAZIDE) (CACHET) [Concomitant]
  12. STOOL SOFTNER (CAPSULES) [Concomitant]
  13. ASPIRIN [Concomitant]
  14. MORPHINE (MORPHINE) (TABLETS) [Concomitant]
  15. K-DUR 20 [Concomitant]
  16. XANAX [Concomitant]
  17. CYMBALTA [Concomitant]
  18. QUININE (QUININE) (TABLETS) [Concomitant]
  19. TOPROL XL (METOPROLOL SUCCINATE) (TABLETS) [Concomitant]
  20. NORVASC [Concomitant]
  21. MULTIVITAMIN (TABLETS) [Concomitant]

REACTIONS (6)
  - ANOREXIA [None]
  - DEHYDRATION [None]
  - DIZZINESS [None]
  - FALL [None]
  - FATIGUE [None]
  - LETHARGY [None]
